FAERS Safety Report 9920300 (Version 1)
Quarter: 2014Q1

REPORT INFORMATION
  Report Type: Spontaneous
  Country: IT (occurrence: IT)
  Receive Date: 20140224
  Receipt Date: 20140224
  Transmission Date: 20141002
  Serious: Yes (Hospitalization)
  Sender: FDA-Public Use
  Company Number: IT-WATSON-2014-02941

PATIENT
  Age: 75 Year
  Sex: Male

DRUGS (7)
  1. CARBOPLATIN (UNKNOWN) [Suspect]
     Indication: NASAL SINUS CANCER
     Dosage: 120 MG, CYCLICAL
     Route: 041
     Dates: start: 20140114, end: 20140128
  2. ERBITUX [Suspect]
     Indication: PRODUCT USED FOR UNKNOWN INDICATION
     Dosage: 900 MG, CYCLICAL
     Route: 041
     Dates: start: 20140114, end: 20140128
  3. CO-EFFERALGAN [Concomitant]
     Indication: PRODUCT USED FOR UNKNOWN INDICATION
     Dosage: UNK
  4. PLASIL                             /00041901/ [Concomitant]
     Indication: PRODUCT USED FOR UNKNOWN INDICATION
     Dosage: UNK
  5. MOVICOL                            /01625101/ [Concomitant]
     Indication: PRODUCT USED FOR UNKNOWN INDICATION
     Dosage: UNK
  6. GRANISETRON [Concomitant]
     Indication: PRODUCT USED FOR UNKNOWN INDICATION
     Dosage: UNK
  7. VIGOR                              /00110502/ [Concomitant]
     Indication: PRODUCT USED FOR UNKNOWN INDICATION
     Dosage: UNK

REACTIONS (1)
  - Anaemia [Recovering/Resolving]
